FAERS Safety Report 12169144 (Version 7)
Quarter: 2016Q4

REPORT INFORMATION
  Report Type: Report from Study
  Country: US (occurrence: US)
  Receive Date: 20160310
  Receipt Date: 20161007
  Transmission Date: 20170207
  Serious: Yes (Hospitalization, Other)
  Sender: FDA-Public Use
  Company Number: PHHY2015US141613

PATIENT
  Age: 64 Year
  Sex: Female

DRUGS (14)
  1. BACLOFEN INTRATHECAL [Suspect]
     Active Substance: BACLOFEN
     Dosage: 69.96 UG, QD (750 UG/ML)
     Route: 037
     Dates: start: 20151014, end: 20151020
  2. TIZANIDINE. [Suspect]
     Active Substance: TIZANIDINE
     Indication: PRODUCT USED FOR UNKNOWN INDICATION
     Route: 048
  3. TRAMADOL. [Suspect]
     Active Substance: TRAMADOL
     Indication: PRODUCT USED FOR UNKNOWN INDICATION
     Route: 048
  4. NO TREATMENT RECEIVED [Suspect]
     Active Substance: UNSPECIFIED INGREDIENT
     Indication: PRODUCT USED FOR UNKNOWN INDICATION
     Route: 065
  5. GABAPENTIN. [Suspect]
     Active Substance: GABAPENTIN
     Indication: PRODUCT USED FOR UNKNOWN INDICATION
     Route: 048
  6. FENTANYL. [Suspect]
     Active Substance: FENTANYL
     Dosage: 5.33 UG (100 UG/ML), QD
     Route: 037
     Dates: start: 20151105, end: 20151130
  7. FENTANYL. [Suspect]
     Active Substance: FENTANYL
     Dosage: 5.87 UG, QD (100 UG/ML)
     Route: 037
     Dates: start: 20151130
  8. BACLOFEN INTRATHECAL [Suspect]
     Active Substance: BACLOFEN
     Dosage: 39.99 UG, QD (750 UG/ML)
     Route: 037
     Dates: start: 20151105, end: 20151130
  9. BACLOFEN INTRATHECAL [Suspect]
     Active Substance: BACLOFEN
     Indication: MUSCLE SPASTICITY
     Dosage: 199.9 UG, QD (2000 UG/ML)
     Route: 037
     Dates: start: 20151007, end: 20151008
  10. FENTANYL. [Suspect]
     Active Substance: FENTANYL
     Indication: PRODUCT USED FOR UNKNOWN INDICATION
     Dosage: 12.49 UG, QD (125 UG/ML)
     Route: 037
     Dates: start: 20151007, end: 20151008
  11. BACLOFEN INTRATHECAL [Suspect]
     Active Substance: BACLOFEN
     Dosage: 44.03 UG, QD (750 UG/ML)
     Route: 037
     Dates: start: 20151130, end: 20160204
  12. BACLOFEN INTRATHECAL [Suspect]
     Active Substance: BACLOFEN
     Dosage: 25.09 UG, QD (250 UG/ML)
     Route: 037
     Dates: start: 20160204
  13. FENTANYL. [Suspect]
     Active Substance: FENTANYL
     Dosage: 10.04 UG, QD (100 UG/ML)
     Route: 037
     Dates: start: 20160204
  14. FENTANYL. [Suspect]
     Active Substance: FENTANYL
     Dosage: 4.366 UG, QD (46.8 UG/ML)
     Route: 037
     Dates: start: 20151014, end: 20151020

REACTIONS (4)
  - Post procedural complication [Recovered/Resolved]
  - Muscular weakness [Recovered/Resolved]
  - Asthenia [Recovered/Resolved]
  - Limb discomfort [Recovered/Resolved]

NARRATIVE: CASE EVENT DATE: 20151007
